FAERS Safety Report 13626721 (Version 2)
Quarter: 2017Q3

REPORT INFORMATION
  Report Type: Report from Study
  Country: US (occurrence: US)
  Receive Date: 20170608
  Receipt Date: 20170703
  Transmission Date: 20171127
  Serious: Yes (Death)
  Sender: FDA-Public Use
  Company Number: US-B.I. PHARMACEUTICALS,INC./RIDGEFIELD-2017-BI-031872

PATIENT
  Age: 72 Year
  Sex: Male

DRUGS (2)
  1. OFEV [Suspect]
     Active Substance: NINTEDANIB
     Indication: IDIOPATHIC PULMONARY FIBROSIS
     Dosage: UNKNOWN;  FORM STRENGTH: 150 MG; ACTION(S) TAKEN WITH PRODUCT: NOT APPLICABLE
     Route: 048
     Dates: start: 201703
  2. OFEV [Suspect]
     Active Substance: NINTEDANIB
     Route: 048
     Dates: start: 20170422, end: 20170528

REACTIONS (1)
  - Death [Fatal]

NARRATIVE: CASE EVENT DATE: 20170528
